FAERS Safety Report 25280783 (Version 1)
Quarter: 2025Q2

REPORT INFORMATION
  Report Type: Spontaneous
  Country: HR (occurrence: HR)
  Receive Date: 20250508
  Receipt Date: 20250508
  Transmission Date: 20250716
  Serious: Yes (Other)
  Sender: CHEPLAPHARM
  Company Number: None

PATIENT
  Sex: Female

DRUGS (3)
  1. CLONAZEPAM [Suspect]
     Active Substance: CLONAZEPAM
     Dosage: DAILY DOSE: 15 MILLIGRAM
     Route: 048
     Dates: start: 202503, end: 202503
  2. FEVARIN [Suspect]
     Active Substance: FLUVOXAMINE MALEATE
     Dosage: DAILY DOSE: 280 MILLIGRAM
     Route: 048
     Dates: start: 202503, end: 202503
  3. IBUPROFEN [Suspect]
     Active Substance: IBUPROFEN
     Dosage: DAILY DOSE: 7200 MILLIGRAM
     Route: 048
     Dates: start: 202503, end: 202503

REACTIONS (3)
  - Suicide attempt [Unknown]
  - Somnolence [Unknown]
  - Intentional overdose [Unknown]

NARRATIVE: CASE EVENT DATE: 20250301
